FAERS Safety Report 13162732 (Version 1)
Quarter: 2017Q1

REPORT INFORMATION
  Report Type: Report from Study
  Country: US (occurrence: US)
  Receive Date: 20170130
  Receipt Date: 20170130
  Transmission Date: 20170428
  Serious: Yes (Other)
  Sender: FDA-Public Use
  Company Number: US-JNJFOC-20170122863

PATIENT
  Age: 83 Year
  Sex: Female
  Weight: 102.06 kg

DRUGS (2)
  1. SIMPONI ARIA [Suspect]
     Active Substance: GOLIMUMAB
     Indication: RHEUMATOID ARTHRITIS
     Route: 042
     Dates: start: 20161213
  2. SIMPONI ARIA [Suspect]
     Active Substance: GOLIMUMAB
     Indication: RHEUMATOID ARTHRITIS
     Route: 042
     Dates: start: 20161019, end: 2016

REACTIONS (3)
  - Fatigue [Not Recovered/Not Resolved]
  - Breast cancer [Unknown]
  - Infected dermal cyst [Unknown]

NARRATIVE: CASE EVENT DATE: 2016
